FAERS Safety Report 4536446-0 (Version None)
Quarter: 2004Q4

REPORT INFORMATION
  Report Type: 
  Country: None (occurrence: None)
  Receive Date: 20041220
  Receipt Date: 20041213
  Transmission Date: 20050328
  Serious: Yes (Death)
  Sender: FDA-Public Use
  Company Number: PERC20040077

PATIENT
  Age: 46 Year
  Sex: Female

DRUGS (4)
  1. PERCOCET [Suspect]
     Dosage: 90 TABS ONCE PO
     Route: 048
     Dates: start: 20030101, end: 20030101
  2. COCAINE [Suspect]
     Dosage: PO
     Route: 048
     Dates: start: 20030101, end: 20030101
  3. DIAZEPAM [Suspect]
     Dosage: PO
     Route: 048
     Dates: start: 20030101, end: 20030101
  4. TRAZODONE HCL [Suspect]
     Dosage: PO
     Route: 048
     Dates: start: 20030101, end: 20030101

REACTIONS (16)
  - ACCIDENTAL DEATH [None]
  - BLOOD PRESSURE SYSTOLIC DECREASED [None]
  - BODY TEMPERATURE INCREASED [None]
  - CARDIAC ARREST [None]
  - COMA [None]
  - DRUG SCREEN POSITIVE [None]
  - DRUG TOXICITY [None]
  - EMBOLISM [None]
  - ENDOCARDITIS [None]
  - MULTIPLE DRUG OVERDOSE INTENTIONAL [None]
  - MUSCLE RIGIDITY [None]
  - MYDRIASIS [None]
  - OXYGEN SATURATION DECREASED [None]
  - PCO2 DECREASED [None]
  - PO2 DECREASED [None]
  - TACHYCARDIA [None]
